FAERS Safety Report 8339542 (Version 4)
Quarter: 2015Q1

REPORT INFORMATION
  Report Type: Report from Study
  Country: US (occurrence: US)
  Receive Date: 20120117
  Receipt Date: 20150217
  Transmission Date: 20150721
  Serious: Yes (Death, Other)
  Sender: FDA-Public Use
  Company Number: US-ROCHE-1028158

PATIENT
  Sex: Female

DRUGS (33)
  1. AVASTIN [Suspect]
     Active Substance: BEVACIZUMAB
     Indication: UTERINE CANCER
     Dosage: NUMBER OF DOSES: 8
     Route: 042
  2. AVASTIN [Suspect]
     Active Substance: BEVACIZUMAB
     Dosage: NUMBER OF DOSES: 8
     Route: 042
  3. TAXOL [Concomitant]
     Active Substance: PACLITAXEL
     Route: 065
  4. EFFEXOR [Concomitant]
     Active Substance: VENLAFAXINE HYDROCHLORIDE
  5. SYNTHROID [Concomitant]
     Active Substance: LEVOTHYROXINE SODIUM
  6. ZOFRAN [Concomitant]
     Active Substance: ONDANSETRON HYDROCHLORIDE
     Route: 065
  7. FISH OIL [Concomitant]
     Active Substance: FISH OIL
  8. BENADRYL [Concomitant]
     Active Substance: DIPHENHYDRAMINE HYDROCHLORIDE
     Route: 065
  9. FOLIC ACID. [Concomitant]
     Active Substance: FOLIC ACID
  10. GINKGO BILOBA [Concomitant]
     Active Substance: GINKGO
  11. TESSALON [Concomitant]
     Active Substance: BENZONATATE
  12. PEPCID [Concomitant]
     Active Substance: FAMOTIDINE
     Route: 065
  13. VITAMIN E [Concomitant]
     Active Substance: .ALPHA.-TOCOPHEROL
  14. AVASTIN [Suspect]
     Active Substance: BEVACIZUMAB
     Route: 042
  15. AVASTIN [Suspect]
     Active Substance: BEVACIZUMAB
     Dosage: NUMBER OF DOSES: 8
     Route: 042
  16. AVASTIN [Suspect]
     Active Substance: BEVACIZUMAB
     Dosage: NUMBER OF DOSES: 8
     Route: 042
  17. DECADRON [Concomitant]
     Active Substance: DEXAMETHASONE
     Route: 065
  18. DOXIL [Concomitant]
     Active Substance: DOXORUBICIN HYDROCHLORIDE
     Route: 065
  19. ALOXI [Concomitant]
     Active Substance: PALONOSETRON HYDROCHLORIDE
     Route: 065
  20. CARBOPLATIN. [Concomitant]
     Active Substance: CARBOPLATIN
  21. AVASTIN [Suspect]
     Active Substance: BEVACIZUMAB
     Dosage: NUMBER OF DOSES: 8
     Route: 042
  22. FLUZONE (UNITED STATES) [Concomitant]
     Route: 065
  23. TYLENOL [Concomitant]
     Active Substance: ACETAMINOPHEN
  24. BACTRIM [Suspect]
     Active Substance: SULFAMETHOXAZOLE\TRIMETHOPRIM
     Indication: PRODUCT USED FOR UNKNOWN INDICATION
     Route: 065
  25. LOVASTATIN. [Concomitant]
     Active Substance: LOVASTATIN
  26. TURMERIC [Concomitant]
     Active Substance: TURMERIC
  27. AVASTIN [Suspect]
     Active Substance: BEVACIZUMAB
     Dosage: NUMBER OF DOSES: 8
     Route: 042
  28. AVASTIN [Suspect]
     Active Substance: BEVACIZUMAB
     Dosage: NUMBER OF DOSES: 8
     Route: 042
  29. AVASTIN [Suspect]
     Active Substance: BEVACIZUMAB
     Dosage: NUMBER OF DOSES: 8
     Route: 042
  30. HEPARIN [Concomitant]
     Active Substance: HEPARIN SODIUM
     Route: 065
  31. VALTREX [Concomitant]
     Active Substance: VALACYCLOVIR HYDROCHLORIDE
  32. ALEVE [Concomitant]
     Active Substance: NAPROXEN SODIUM
  33. PYRIDOXIN [Concomitant]
     Active Substance: PYRIDOXINE

REACTIONS (24)
  - Pain of skin [Unknown]
  - Fatigue [Unknown]
  - Pain in extremity [Unknown]
  - Dyspnoea exertional [Unknown]
  - Hypersensitivity [Unknown]
  - Ill-defined disorder [Unknown]
  - Neoplasm [Unknown]
  - Cardiac failure congestive [Fatal]
  - Erythema [Unknown]
  - Stomatitis [Unknown]
  - Swelling [Unknown]
  - Neuropathy peripheral [Unknown]
  - Blister [Unknown]
  - Local swelling [Unknown]
  - Metastatic uterine cancer [Fatal]
  - Constipation [Unknown]
  - Nasal congestion [Unknown]
  - Blood pressure increased [Unknown]
  - Eye haemorrhage [Unknown]
  - Palmar-plantar erythrodysaesthesia syndrome [Unknown]
  - Skin exfoliation [Unknown]
  - Decreased appetite [Unknown]
  - Hot flush [Unknown]
  - Oral pain [Unknown]
